FAERS Safety Report 5335126-1 (Version None)
Quarter: 2007Q2

REPORT INFORMATION
  Report Type: 
  Country: None (occurrence: None)
  Receive Date: 20070525
  Receipt Date: 20070518
  Transmission Date: 20071010
  Serious: Yes (Death, Other)
  Sender: FDA-Public Use
  Company Number: CH-ABBOTT-06P-151-0335625-00

PATIENT
  Age: 4 Year
  Sex: Male

DRUGS (2)
  1. VALPROIC ACID [Suspect]
     Indication: CONVULSION
     Route: 042
  2. ACYCLOVIR [Interacting]
     Indication: ENCEPHALITIS HERPES
     Route: 042

REACTIONS (3)
  - CEREBRAL HAEMORRHAGE [None]
  - DRUG INTERACTION [None]
  - PLATELET FUNCTION TEST ABNORMAL [None]
